FAERS Safety Report 5099964-5 (Version None)
Quarter: 2006Q3

REPORT INFORMATION
  Report Type: 
  Country: None (occurrence: None)
  Receive Date: 20060906
  Receipt Date: 20060817
  Transmission Date: 20061208
  Serious: Yes (Death, Hospitalization)
  Sender: FDA-Public Use
  Company Number: APP200600235

PATIENT
  Age: 65 Year
  Sex: Male

DRUGS (6)
  1. FLUOROURACIL [Suspect]
     Indication: METASTATIC GASTRIC CANCER
     Dosage: 1910  MG (1910 MG,1 IN 1 D), INTRAVENOUS
     Route: 042
     Dates: start: 20060726, end: 20060731
  2. CISPLATIN [Suspect]
     Indication: METASTATIC GASTRIC CANCER
     Dosage: 191 MG (191 MG, ONCE), INTRAVENOUS
     Route: 042
     Dates: start: 20060726, end: 20060726
  3. LIPITOR [Concomitant]
  4. NEXIUM [Concomitant]
  5. ACTIVATED PROTEIN C (LISINOPRIL) [Concomitant]
  6. MULTI-VITAMIN [Concomitant]

REACTIONS (14)
  - ASCITES [None]
  - ATELECTASIS [None]
  - BLOOD CREATINE INCREASED [None]
  - BLOOD LACTIC ACID INCREASED [None]
  - BLOOD PH INCREASED [None]
  - BLOOD SODIUM DECREASED [None]
  - BLOOD UREA INCREASED [None]
  - FEBRILE NEUTROPENIA [None]
  - FIBRIN D DIMER INCREASED [None]
  - MENINGISM [None]
  - PCO2 DECREASED [None]
  - PLEURAL EFFUSION [None]
  - PNEUMONIA [None]
  - SEPTIC SHOCK [None]
